FAERS Safety Report 24437956 (Version 1)
Quarter: 2024Q4

REPORT INFORMATION
  Report Type: Spontaneous
  Country: CN (occurrence: CN)
  Receive Date: 20241015
  Receipt Date: 20241015
  Transmission Date: 20250114
  Serious: Yes (Hospitalization)
  Sender: PFIZER
  Company Number: CN-PFIZER INC-PV202400132566

PATIENT
  Age: 58 Year
  Sex: Male
  Weight: 52.5 kg

DRUGS (2)
  1. AXITINIB [Suspect]
     Active Substance: AXITINIB
     Indication: Renal cancer
     Dosage: 5 MG, 2X/DAY
     Route: 048
     Dates: start: 20230717, end: 20231024
  2. TORIPALIMAB [Concomitant]
     Active Substance: TORIPALIMAB
     Indication: Renal cancer

REACTIONS (3)
  - Oedema peripheral [Recovering/Resolving]
  - Face oedema [Recovering/Resolving]
  - Rash [Recovering/Resolving]

NARRATIVE: CASE EVENT DATE: 20231024
